FAERS Safety Report 24036051 (Version 1)
Quarter: 2024Q3

REPORT INFORMATION
  Report Type: Spontaneous
  Country: US (occurrence: US)
  Receive Date: 20240701
  Receipt Date: 20240701
  Transmission Date: 20241017
  Serious: Yes (Other)
  Sender: GLENMARK
  Company Number: US-MLMSERVICE-20240613-PI099784-00306-1

PATIENT

DRUGS (1)
  1. TACROLIMUS [Suspect]
     Active Substance: TACROLIMUS
     Indication: Immunosuppression
     Dosage: UNK
     Route: 065

REACTIONS (3)
  - Cardiac dysfunction [Recovered/Resolved]
  - Haemodynamic instability [Recovered/Resolved]
  - Pericardial cyst [Recovered/Resolved]
